FAERS Safety Report 6354038-8 (Version None)
Quarter: 2009Q3

REPORT INFORMATION
  Report Type: 
  Country: None (occurrence: None)
  Receive Date: 20090914
  Receipt Date: 20090903
  Transmission Date: 20100115
  Serious: No
  Sender: FDA-Public Use
  Company Number: US-SOLVAY-00209005062

PATIENT
  Age: 74 Month
  Sex: Female
  Weight: 26.7 kg

DRUGS (2)
  1. ANDROGEL [Suspect]
     Indication: ACCIDENTAL EXPOSURE
     Dosage: DAILY DOSE:  UNKNOWN
     Route: 062
     Dates: start: 20060101, end: 20081101
  2. ANDRODERM [Suspect]
     Indication: DRUG USE FOR UNKNOWN INDICATION
     Dosage: DAILY DOSE:  UNKNOWN
     Route: 065

REACTIONS (2)
  - HIRSUTISM [None]
  - X-RAY ABNORMAL [None]
